FAERS Safety Report 5826588-1 (Version None)
Quarter: 2008Q3

REPORT INFORMATION
  Report Type: 
  Country: None (occurrence: None)
  Receive Date: 20080728
  Receipt Date: 20080728
  Transmission Date: 20090109
  Serious: Yes (Hospitalization, Disabling)
  Sender: FDA-Public Use
  Company Number: None

PATIENT
  Age: 60 Year
  Sex: Female
  Weight: 53.0709 kg

DRUGS (1)
  1. EVISTA [Suspect]
     Dosage: ONCE PER DAY PO
     Route: 048

REACTIONS (1)
  - BREAST CANCER [None]
